FAERS Safety Report 23734215 (Version 1)
Quarter: 2024Q2

REPORT INFORMATION
  Report Type: Spontaneous
  Country: FR (occurrence: None)
  Receive Date: 20240412
  Receipt Date: 20240412
  Transmission Date: 20240715
  Serious: Yes (Hospitalization, Other)
  Sender: FDA-Public Use
  Company Number: FR-ROCHE-3538962

PATIENT
  Age: 90 Year
  Sex: Male

DRUGS (1)
  1. VABYSMO [Suspect]
     Active Substance: FARICIMAB\FARICIMAB-SVOA
     Indication: Product used for unknown indication
     Dosage: MOST RECENT DOSE PRIOR TO EVENT : 17/JAN/2024
     Route: 065
     Dates: start: 20231220

REACTIONS (3)
  - Cerebrovascular accident [Unknown]
  - Cardiac fibrillation [Unknown]
  - Cardiac failure [Unknown]

NARRATIVE: CASE EVENT DATE: 20240118
